FAERS Safety Report 7041314-9 (Version None)
Quarter: 2010Q4

REPORT INFORMATION
  Report Type: 
  Country: None (occurrence: None)
  Receive Date: 20101013
  Receipt Date: 20101004
  Transmission Date: 20110411
  Serious: Yes (Hospitalization)
  Sender: FDA-Public Use
  Company Number: PHHY2010US67046

PATIENT
  Sex: Female

DRUGS (3)
  1. EXTAVIA [Suspect]
     Indication: MULTIPLE SCLEROSIS
     Dosage: 0.25 MG, QOD
     Route: 058
     Dates: start: 20100304
  2. AUGMENTIN '125' [Concomitant]
     Dosage: 250 MG, BID
  3. TYLENOL [Concomitant]
     Dosage: UNK

REACTIONS (6)
  - BRONCHITIS [None]
  - DRUG DOSE OMISSION [None]
  - EAR INFECTION [None]
  - FATIGUE [None]
  - OROPHARYNGEAL PAIN [None]
  - UPPER RESPIRATORY TRACT INFECTION [None]
